FAERS Safety Report 14585067 (Version 1)
Quarter: 2018Q1

REPORT INFORMATION
  Report Type: Spontaneous
  Country: DE (occurrence: DE)
  Receive Date: 20180301
  Receipt Date: 20180301
  Transmission Date: 20180509
  Serious: Yes (Life-Threatening, Hospitalization)
  Sender: FDA-Public Use
  Company Number: DE-B.I. PHARMACEUTICALS,INC./RIDGEFIELD-2018-BI-006306

PATIENT
  Age: 90 Year
  Sex: Female
  Weight: 65 kg

DRUGS (10)
  1. ALENDRONIC ACID [Concomitant]
     Active Substance: ALENDRONIC ACID
     Indication: PRODUCT USED FOR UNKNOWN INDICATION
     Route: 065
  2. METOPROLOL SUCCINATE. [Concomitant]
     Active Substance: METOPROLOL SUCCINATE
     Indication: PRODUCT USED FOR UNKNOWN INDICATION
     Dosage: STRENGTH: 1 A 47.5
     Route: 065
  3. PIPAMPERON HEXAL [Concomitant]
     Indication: PRODUCT USED FOR UNKNOWN INDICATION
     Route: 065
  4. PRADAXA [Suspect]
     Active Substance: DABIGATRAN ETEXILATE MESYLATE
     Indication: ATRIAL FIBRILLATION
     Route: 048
     Dates: start: 20130531
  5. RISPERIDON ARISTO [Concomitant]
     Indication: PRODUCT USED FOR UNKNOWN INDICATION
     Route: 065
  6. NEPHROTRANS [Concomitant]
     Active Substance: SODIUM BICARBONATE
     Indication: PRODUCT USED FOR UNKNOWN INDICATION
     Route: 065
  7. L-THYROXIN [Concomitant]
     Active Substance: LEVOTHYROXINE SODIUM
     Indication: PRODUCT USED FOR UNKNOWN INDICATION
     Dosage: STRENGTH: 50
     Route: 065
  8. NOVAMINSULFON LICHTENSTEIN [Concomitant]
     Active Substance: METAMIZOLE SODIUM
     Indication: PAIN
     Route: 065
  9. TORASEMID ABZ [Concomitant]
     Indication: PRODUCT USED FOR UNKNOWN INDICATION
     Route: 065
  10. FERRO SANOL DUODEN [Concomitant]
     Indication: PRODUCT USED FOR UNKNOWN INDICATION
     Route: 065

REACTIONS (5)
  - Blood creatinine increased [Not Recovered/Not Resolved]
  - Skin haemorrhage [Recovered/Resolved]
  - Melaena [Recovered/Resolved]
  - Haematoma [Recovered/Resolved]
  - Haematemesis [Recovered/Resolved]

NARRATIVE: CASE EVENT DATE: 20170105
